FAERS Safety Report 9855488 (Version 3)
Quarter: 2014Q2

REPORT INFORMATION
  Report Type: Spontaneous
  Country: US (occurrence: US)
  Receive Date: 20140130
  Receipt Date: 20140402
  Transmission Date: 20141212
  Serious: Yes (Other)
  Sender: FDA-Public Use
  Company Number: US-ASTELLAS-2014US000904

PATIENT
  Age: 83 Year
  Sex: Male
  Weight: 66 kg

DRUGS (1)
  1. XTANDI [Suspect]
     Indication: PROSTATE CANCER METASTATIC
     Dosage: 160 MG, UID/QD
     Route: 048
     Dates: start: 20131227, end: 20140327

REACTIONS (6)
  - Drug dose omission [Unknown]
  - Ureteral stent insertion [Unknown]
  - Eructation [Unknown]
  - Tremor [Unknown]
  - Constipation [Recovered/Resolved]
  - Nasopharyngitis [Unknown]
